FAERS Safety Report 7809747-8 (Version None)
Quarter: 2011Q4

REPORT INFORMATION
  Report Type: 
  Country: None (occurrence: None)
  Receive Date: 20111007
  Receipt Date: 20110928
  Transmission Date: 20120403
  Serious: Yes (Hospitalization)
  Sender: FDA-Public Use
  Company Number: 2011SP045930

PATIENT
  Age: 34 Year
  Sex: Female

DRUGS (16)
  1. NORVIR [Suspect]
     Indication: HIV INFECTION
     Dosage: 100 MG;QD;PO
     Route: 048
  2. REMERON [Suspect]
     Indication: SCHIZOAFFECTIVE DISORDER
     Dosage: 45 MG;QD PO 7.5 MG;QD 15 MG;QD
     Route: 048
     Dates: start: 20110808, end: 20110815
  3. REMERON [Suspect]
     Indication: SCHIZOAFFECTIVE DISORDER
     Dosage: 45 MG;QD PO 7.5 MG;QD 15 MG;QD
     Route: 048
     Dates: end: 20110728
  4. REMERON [Suspect]
     Indication: SCHIZOAFFECTIVE DISORDER
     Dosage: 45 MG;QD PO 7.5 MG;QD 15 MG;QD
     Route: 048
     Dates: start: 20110815
  5. REYATAZ [Suspect]
     Indication: HIV INFECTION
     Dosage: 300 MG;QD;PO
     Route: 048
  6. OXAZEPAM [Suspect]
     Indication: PRODUCT USED FOR UNKNOWN INDICATION
     Dosage: 15 MG;QID;PO
     Route: 048
     Dates: end: 20110818
  7. METHADONE HCL [Suspect]
     Indication: MENTAL DISORDER DUE TO A GENERAL MEDICAL CONDITION
     Dosage: 90 MG;QD;PO
     Route: 048
  8. SEROQUEL XR [Suspect]
     Indication: SCHIZOAFFECTIVE DISORDER
     Dosage: SEE IMAGE
     Route: 048
     Dates: start: 20100801
  9. SEROQUEL XR [Suspect]
     Indication: SCHIZOAFFECTIVE DISORDER
     Dosage: SEE IMAGE
     Route: 048
     Dates: start: 20110719
  10. SEROQUEL XR [Suspect]
     Indication: SCHIZOAFFECTIVE DISORDER
     Dosage: SEE IMAGE
     Route: 048
     Dates: start: 20110501
  11. SEROQUEL XR [Suspect]
     Indication: SCHIZOAFFECTIVE DISORDER
     Dosage: SEE IMAGE
     Route: 048
     Dates: start: 20100101
  12. SEROQUEL XR [Suspect]
     Indication: SCHIZOAFFECTIVE DISORDER
     Dosage: SEE IMAGE
     Route: 048
     Dates: start: 20110401
  13. SEROQUEL XR [Suspect]
     Indication: SCHIZOAFFECTIVE DISORDER
     Dosage: SEE IMAGE
     Route: 048
     Dates: start: 20110807
  14. SEROQUEL XR [Suspect]
     Indication: SCHIZOAFFECTIVE DISORDER
     Dosage: SEE IMAGE
     Route: 048
     Dates: start: 20110808, end: 20110818
  15. SEROQUEL XR [Suspect]
     Indication: SCHIZOAFFECTIVE DISORDER
     Dosage: SEE IMAGE
     Route: 048
     Dates: start: 20110806
  16. SEROQUEL XR [Suspect]
     Indication: SCHIZOAFFECTIVE DISORDER
     Dosage: SEE IMAGE
     Route: 048
     Dates: start: 20110802

REACTIONS (6)
  - BLOOD POTASSIUM INCREASED [None]
  - OVERDOSE [None]
  - DRUG INTERACTION [None]
  - SEDATION [None]
  - ALCOHOLISM [None]
  - ELECTROCARDIOGRAM QT PROLONGED [None]
